FAERS Safety Report 7286385-X (Version None)
Quarter: 2011Q1

REPORT INFORMATION
  Report Type: 
  Country: None (occurrence: None)
  Receive Date: 20110210
  Receipt Date: 20110204
  Transmission Date: 20110831
  Serious: Yes (Death, Disabling, Other)
  Sender: FDA-Public Use
  Company Number: US-TEVA-266146USA

PATIENT
  Sex: Female

DRUGS (2)
  1. METOCLOPRAMIDE HCL [Suspect]
  2. METOCLOPRAMIDE HCL [Suspect]

REACTIONS (4)
  - TARDIVE DYSKINESIA [None]
  - NERVOUS SYSTEM DISORDER [None]
  - DYSKINESIA [None]
  - EXTRAPYRAMIDAL DISORDER [None]
